FAERS Safety Report 20701875 (Version 1)
Quarter: 2022Q2

REPORT INFORMATION
  Report Type: Spontaneous
  Country: AT (occurrence: AT)
  Receive Date: 20220412
  Receipt Date: 20220412
  Transmission Date: 20220720
  Serious: Yes (Other)
  Sender: FDA-Public Use
  Company Number: AT-002147023-NVSC2022AT053466

PATIENT
  Sex: Female

DRUGS (2)
  1. CISPLATIN [Suspect]
     Active Substance: CISPLATIN
     Indication: Bladder cancer
     Dosage: UNK
     Route: 065
  2. GEMCITABINE [Suspect]
     Active Substance: GEMCITABINE
     Indication: Bladder cancer
     Dosage: UNK
     Route: 065

REACTIONS (11)
  - Metastases to lymph nodes [Unknown]
  - Metastases to bone [Unknown]
  - Polyneuropathy [Unknown]
  - Tremor [Unknown]
  - Dyspnoea [Unknown]
  - Therapy partial responder [Unknown]
  - Nausea [Unknown]
  - Fatigue [Unknown]
  - Myalgia [Unknown]
  - Asthenia [Unknown]
  - Vertigo [Unknown]

NARRATIVE: CASE EVENT DATE: 20200813
